FAERS Safety Report 5369746-5 (Version None)
Quarter: 2007Q2

REPORT INFORMATION
  Report Type: 
  Country: None (occurrence: None)
  Receive Date: 20070625
  Receipt Date: 20070613
  Transmission Date: 20071010
  Serious: Yes (Other)
  Sender: FDA-Public Use
  Company Number: US-PFIZER INC-2007049624

PATIENT
  Sex: Female
  Weight: 84.8 kg

DRUGS (9)
  1. CHANTIX [Suspect]
     Indication: EX-SMOKER
  2. CITALOPRAM HYDROBROMIDE [Concomitant]
  3. ROZEREM [Concomitant]
  4. SPIRONOLACTONE [Concomitant]
     Dosage: DAILY DOSE:50MG
  5. FUROSEMIDE [Concomitant]
  6. POTASSIUM ACETATE [Concomitant]
  7. CELEBREX [Concomitant]
  8. OXYCODONE HCL [Concomitant]
  9. CARISOPRODOL [Concomitant]

REACTIONS (1)
  - FALL [None]
